FAERS Safety Report 5903104-7 (Version None)
Quarter: 2008Q3

REPORT INFORMATION
  Report Type: 
  Country: None (occurrence: None)
  Receive Date: 20080926
  Receipt Date: 20080911
  Transmission Date: 20090109
  Serious: Yes (Other)
  Sender: FDA-Public Use
  Company Number: JPI-P-004767

PATIENT
  Age: 79 Year
  Sex: Female

DRUGS (7)
  1. LUVOX [Suspect]
     Indication: DEPRESSION
     Dosage: (50 MG,1 D),ORAL; (100 MG,1 D),ORAL; (50 MG,1 D),ORAL; (150 MG,1 D)
     Route: 048
     Dates: start: 20070301, end: 20070401
  2. LUVOX [Suspect]
     Indication: DEPRESSION
     Dosage: (50 MG,1 D),ORAL; (100 MG,1 D),ORAL; (50 MG,1 D),ORAL; (150 MG,1 D)
     Route: 048
     Dates: start: 20070401, end: 20071101
  3. LUVOX [Suspect]
     Indication: DEPRESSION
     Dosage: (50 MG,1 D),ORAL; (100 MG,1 D),ORAL; (50 MG,1 D),ORAL; (150 MG,1 D)
     Route: 048
     Dates: start: 20071101, end: 20080401
  4. LUVOX [Suspect]
     Indication: DEPRESSION
     Dosage: (50 MG,1 D),ORAL; (100 MG,1 D),ORAL; (50 MG,1 D),ORAL; (150 MG,1 D)
     Route: 048
     Dates: start: 20080401, end: 20080701
  5. LUVOX [Suspect]
     Indication: DEPRESSION
     Dosage: (50 MG,1 D),ORAL; (100 MG,1 D),ORAL; (50 MG,1 D),ORAL; (150 MG,1 D)
     Route: 048
     Dates: start: 20080701, end: 20080805
  6. CANDESARTAN CILEXETIL [Concomitant]
  7. LANSOPRAZOLE [Concomitant]

REACTIONS (5)
  - CRYING [None]
  - DEMENTIA [None]
  - EYELID FUNCTION DISORDER [None]
  - FALL [None]
  - PARKINSONISM [None]
